FAERS Safety Report 8817124 (Version 1)
Quarter: 2012Q4

REPORT INFORMATION
  Report Type: Spontaneous
  Country: US (occurrence: None)
  Receive Date: 20121003
  Receipt Date: 20121003
  Transmission Date: 20130627
  Serious: Yes (Hospitalization)
  Sender: FDA-Public Use
  Company Number: None

PATIENT
  Age: 54 Year
  Sex: Male
  Weight: 43 kg

DRUGS (2)
  1. DAPSONE [Suspect]
     Indication: PNEUMOCYSTIS PNEUMONIA
     Route: 048
     Dates: start: 20111103, end: 20111125
  2. DAPSONE [Suspect]
     Indication: PNEUMOCYSTIS PNEUMONIA
     Dates: start: 20120105, end: 20120226

REACTIONS (2)
  - Somnolence [None]
  - Methaemoglobinaemia [None]
